FAERS Safety Report 8482913-7 (Version None)
Quarter: 2012Q3

REPORT INFORMATION
  Report Type: 
  Country: None (occurrence: None)
  Receive Date: 20120702
  Receipt Date: 20120621
  Transmission Date: 20120928
  Serious: Yes (Hospitalization)
  Sender: FDA-Public Use
  Company Number: US-ELI_LILLY_AND_COMPANY-US201112007068

PATIENT
  Sex: Female

DRUGS (9)
  1. FORTEO [Suspect]
     Dosage: 20 UG, QD
  2. CARAFATE [Concomitant]
     Dosage: UNK
  3. FORTEO [Suspect]
     Indication: OSTEOPOROSIS
     Dosage: 20 UG, QD
     Dates: start: 20111112
  4. FORTEO [Suspect]
     Dosage: 20 UG, QD
  5. PEPCID [Concomitant]
     Dosage: UNK
  6. FORTEO [Suspect]
     Dosage: 20 UG, QD
  7. MIRALAX [Concomitant]
     Dosage: UNK
  8. PROTONIX [Concomitant]
     Dosage: UNK
  9. VITAMIN D [Concomitant]
     Dosage: UNK

REACTIONS (4)
  - ADVERSE DRUG REACTION [None]
  - PANCREATITIS [None]
  - FATIGUE [None]
  - LIGAMENT INJURY [None]
